FAERS Safety Report 7591085-2 (Version None)
Quarter: 2011Q3

REPORT INFORMATION
  Report Type: 
  Country: None (occurrence: None)
  Receive Date: 20110705
  Receipt Date: 20110620
  Transmission Date: 20111222
  Serious: Yes (Other)
  Sender: FDA-Public Use
  Company Number: US-GENENTECH-321007

PATIENT
  Sex: Female

DRUGS (8)
  1. PREDNISOLONE [Suspect]
     Indication: LYMPHOMA
     Dosage: UNK
     Route: 065
  2. CARMUSTINE [Suspect]
     Indication: LYMPHOMA
     Dosage: UNK
     Route: 065
  3. VINCRISTINE [Suspect]
     Indication: LYMPHOMA
     Dosage: UNK
     Route: 065
  4. DOXORUBICIN HCL [Suspect]
     Indication: LYMPHOMA
     Dosage: UNK
     Route: 065
  5. RITUXIMAB [Suspect]
     Indication: LYMPHOMA
     Dosage: UNK
     Route: 065
  6. CYCLOPHOSPHAMIDE [Suspect]
     Indication: LYMPHOMA
     Dosage: UNK
     Route: 065
  7. METHOTREXATE [Suspect]
     Indication: LYMPHOMA
     Dosage: UNK
     Route: 065
  8. ETOPOSIDE [Suspect]
     Indication: LYMPHOMA
     Dosage: UNK
     Route: 065

REACTIONS (1)
  - CARDIOMYOPATHY [None]
